FAERS Safety Report 8534352-8 (Version None)
Quarter: 2012Q3

REPORT INFORMATION
  Report Type: 
  Country: None (occurrence: None)
  Receive Date: 20120724
  Receipt Date: 20120718
  Transmission Date: 20120928
  Serious: Yes (Hospitalization)
  Sender: FDA-Public Use
  Company Number: US-B.I. PHARMACEUTICALS,INC./RIDGEFIELD-2012-BP-16064BP

PATIENT
  Sex: Female

DRUGS (10)
  1. SPIRIVA [Suspect]
     Indication: CHRONIC OBSTRUCTIVE PULMONARY DISEASE
     Dosage: 18 MCG
     Route: 055
     Dates: start: 20100101
  2. METOPROLOL SUCCINATE [Concomitant]
     Indication: BLOOD PRESSURE
     Dosage: 50 MG
     Route: 048
  3. POTASSIUM CHLORIDE [Concomitant]
     Dosage: 20 MEQ
     Route: 048
  4. DILTIAZEM [Concomitant]
     Dosage: 120 MG
     Route: 048
  5. SIMVASTATIN [Concomitant]
     Indication: BLOOD CHOLESTEROL
     Dosage: 10 MG
     Route: 048
  6. FLUDROCORT [Concomitant]
     Dosage: 0.1 MG
     Route: 048
  7. CALCIUM [Concomitant]
     Dosage: 1000 MG
     Route: 048
  8. EFFEXOR [Concomitant]
     Indication: DEPRESSION
     Dosage: 150 MG
     Route: 048
  9. VITAMIN D [Concomitant]
     Dosage: 1000 MG
     Route: 048
  10. DULERA [Concomitant]
     Indication: CHRONIC OBSTRUCTIVE PULMONARY DISEASE

REACTIONS (1)
  - PAIN [None]
